FAERS Safety Report 18411550 (Version 2)
Quarter: 2020Q4

REPORT INFORMATION
  Report Type: Report from Study
  Country: BR (occurrence: BR)
  Receive Date: 20201021
  Receipt Date: 20201029
  Transmission Date: 20210114
  Serious: Yes (Hospitalization)
  Sender: FDA-Public Use
  Company Number: NVSC2020BR282299

PATIENT
  Age: 9 Year
  Sex: Male

DRUGS (1)
  1. OMNITROPE [Suspect]
     Active Substance: SOMATROPIN
     Indication: PRODUCT USED FOR UNKNOWN INDICATION
     Dosage: 1 UNK (7 TIMES)
     Route: 065
     Dates: start: 20200824, end: 20200930

REACTIONS (11)
  - Tinnitus [Unknown]
  - Swelling [Unknown]
  - Headache [Unknown]
  - Visual impairment [Unknown]
  - Eye pain [Unknown]
  - Fatigue [Unknown]
  - Dehydration [Unknown]
  - Vomiting [Unknown]
  - Intracranial pressure increased [Recovering/Resolving]
  - Malaise [Unknown]
  - Neck pain [Unknown]

NARRATIVE: CASE EVENT DATE: 202009
